FAERS Safety Report 9946977 (Version 1)
Quarter: 2014Q1

REPORT INFORMATION
  Report Type: Report from Study
  Country: US (occurrence: US)
  Receive Date: 20140303
  Receipt Date: 20140303
  Transmission Date: 20141002
  Serious: No
  Sender: FDA-Public Use
  Company Number: US-ABBVIE-13P-163-1060361-00

PATIENT
  Age: 73 Year
  Sex: Male

DRUGS (19)
  1. HUMIRA [Suspect]
     Indication: RHEUMATOID ARTHRITIS
     Dosage: INITIAL DOSE
     Dates: start: 20130222
  2. HUMIRA [Suspect]
     Indication: PSORIASIS
  3. LUNESTA [Concomitant]
     Indication: INSOMNIA
     Dosage: AT BEDTIME
  4. CARISOPRODOL [Concomitant]
     Indication: MUSCLE SPASMS
  5. ENDODAN [Concomitant]
     Indication: PAIN
     Dosage: 4.8/325 MG, 2 TABS, 3 TIMES DAILY
  6. METFORMIN HCL [Concomitant]
     Indication: DIABETES MELLITUS
  7. NEXIUM [Concomitant]
     Indication: GASTROOESOPHAGEAL REFLUX DISEASE
  8. PREDNISONE [Concomitant]
     Indication: RHEUMATOID ARTHRITIS
     Dosage: 6 MG DAILY
  9. BUTALBITAL COMPOUND [Concomitant]
     Indication: MIGRAINE
  10. FISH OIL [Concomitant]
     Indication: PRODUCT USED FOR UNKNOWN INDICATION
  11. VITAMIN C [Concomitant]
     Indication: PRODUCT USED FOR UNKNOWN INDICATION
  12. MULTIVITAMIN [Concomitant]
     Indication: PRODUCT USED FOR UNKNOWN INDICATION
     Dosage: DAILY
  13. GLUCOSAMINE CHONDROITIN [Concomitant]
     Indication: PRODUCT USED FOR UNKNOWN INDICATION
     Dosage: 1500/1200 MG, 2 TIMES DAILY
  14. BIOTIN [Concomitant]
     Indication: ONYCHOCLASIS
     Dosage: 2500 MG DAILY
  15. GARLIC EXTRACT [Concomitant]
     Indication: PRODUCT USED FOR UNKNOWN INDICATION
  16. VITAMIN E [Concomitant]
     Indication: PRODUCT USED FOR UNKNOWN INDICATION
  17. SUPER B COMPLEX [Concomitant]
     Indication: PRODUCT USED FOR UNKNOWN INDICATION
     Dosage: DAILY
  18. POTASSIUM GLUCONATE [Concomitant]
     Indication: PRODUCT USED FOR UNKNOWN INDICATION
     Dosage: 99 MG DAILY
  19. CALCIUM MAGNESIUM ZINC [Concomitant]
     Indication: MINERAL SUPPLEMENTATION

REACTIONS (4)
  - Fatigue [Not Recovered/Not Resolved]
  - Nausea [Not Recovered/Not Resolved]
  - Decreased appetite [Not Recovered/Not Resolved]
  - Heat stroke [Not Recovered/Not Resolved]
